FAERS Safety Report 6096021-6 (Version None)
Quarter: 2009Q1

REPORT INFORMATION
  Report Type: 
  Country: None (occurrence: None)
  Receive Date: 20090227
  Receipt Date: 20080811
  Transmission Date: 20090719
  Serious: No
  Sender: FDA-Public Use
  Company Number: A0742004A

PATIENT
  Age: 55 Year
  Sex: Female

DRUGS (9)
  1. LAMICTAL [Suspect]
     Indication: EPILEPSY
     Dosage: 150MG TWICE PER DAY
     Route: 048
     Dates: start: 20080101
  2. TOPAMAX [Concomitant]
  3. SYMBICORT [Concomitant]
  4. ALBUTEROL [Concomitant]
  5. FLONASE [Concomitant]
  6. THYROID TAB [Concomitant]
  7. GLUCOPHAGE [Concomitant]
  8. LANTUS [Concomitant]
  9. NOVOLOG [Concomitant]

REACTIONS (6)
  - BURNING SENSATION [None]
  - DERMATITIS ACNEIFORM [None]
  - FEELING HOT [None]
  - FEELING JITTERY [None]
  - PRURITUS [None]
  - RASH ERYTHEMATOUS [None]
